FAERS Safety Report 9120690 (Version 1)
Quarter: 2013Q1

REPORT INFORMATION
  Report Type: Spontaneous
  Country: JP (occurrence: JP)
  Receive Date: 20130226
  Receipt Date: 20130226
  Transmission Date: 20140127
  Serious: Yes (Other)
  Sender: FDA-Public Use
  Company Number: JP-ROCHE-1194870

PATIENT
  Age: 75 Year
  Sex: Female

DRUGS (6)
  1. TAMIFLU [Suspect]
     Indication: INFLUENZA
     Route: 048
     Dates: start: 20130131, end: 20130204
  2. ASTOMIN [Concomitant]
     Dosage: DOSAGE IS UNCERTAIN.
     Route: 048
     Dates: start: 20130131, end: 20130204
  3. METHISTA [Concomitant]
     Route: 048
     Dates: start: 20130131, end: 20130204
  4. OMEPRAZON [Concomitant]
     Route: 048
     Dates: start: 20090127
  5. MAGNESIUM OXIDE [Concomitant]
     Route: 048
     Dates: start: 20090127
  6. BIOFERMIN [Concomitant]
     Route: 048
     Dates: start: 20090326

REACTIONS (4)
  - Memory impairment [Recovered/Resolved]
  - Feeling abnormal [Unknown]
  - Vomiting [Unknown]
  - Abdominal pain lower [Unknown]
